FAERS Safety Report 7414633-1 (Version None)
Quarter: 2011Q2

REPORT INFORMATION
  Report Type: 
  Country: None (occurrence: None)
  Receive Date: 20110414
  Receipt Date: 20110404
  Transmission Date: 20111010
  Serious: Yes (Other)
  Sender: FDA-Public Use
  Company Number: GB-JNJFOC-20110302414

PATIENT
  Age: 63 Year
  Sex: Female
  Weight: 66.9 kg

DRUGS (9)
  1. GOLIMUMAB [Suspect]
     Indication: RHEUMATOID ARTHRITIS
     Route: 058
  2. FOLIC ACID [Concomitant]
     Indication: PROPHYLAXIS
     Route: 058
  3. CALCICHEW D3 FORTE [Concomitant]
     Indication: PROPHYLAXIS
  4. OMEPRAZOLE [Concomitant]
     Indication: ILL-DEFINED DISORDER
  5. HYDROXYCHLOROQUINE SULFATE [Concomitant]
     Indication: RHEUMATOID ARTHRITIS
     Route: 048
  6. METHOTREXATE [Concomitant]
     Indication: ILL-DEFINED DISORDER
     Route: 058
  7. PARACETAMOL [Concomitant]
     Indication: PAIN
     Route: 048
  8. CANDESARTAN [Concomitant]
     Indication: HYPERTENSION
     Route: 048
  9. ALLOPURINOL [Concomitant]
     Indication: GOUT
     Route: 048

REACTIONS (2)
  - ARTHRALGIA [None]
  - RASH PUSTULAR [None]
